FAERS Safety Report 23618232 (Version 1)
Quarter: 2024Q1

REPORT INFORMATION
  Report Type: Spontaneous
  Country: US (occurrence: US)
  Receive Date: 20240311
  Receipt Date: 20240311
  Transmission Date: 20240410
  Serious: No
  Sender: FDA-Public Use
  Company Number: US-BAYER-2024A035736

PATIENT

DRUGS (1)
  1. MIRALAX [Suspect]
     Active Substance: POLYETHYLENE GLYCOL 3350
     Indication: Gastrointestinal disorder
     Dosage: LESS THAN 1 CAPFUL MIXED IN HALF GLASS LIQUID
     Route: 048

REACTIONS (2)
  - Incorrect dose administered [Unknown]
  - Diarrhoea [Unknown]
